FAERS Safety Report 7916875-5 (Version None)
Quarter: 2011Q4

REPORT INFORMATION
  Report Type: 
  Country: None (occurrence: None)
  Receive Date: 20111116
  Receipt Date: 20111108
  Transmission Date: 20120403
  Serious: Yes (Hospitalization)
  Sender: FDA-Public Use
  Company Number: US-ASTELLAS-2011US007484

PATIENT
  Sex: Female
  Weight: 80 kg

DRUGS (18)
  1. NITROGLYCERIN [Concomitant]
     Indication: ANGINA PECTORIS
  2. OLMESARTAN MEDOXOMIL [Concomitant]
     Indication: HYPERTENSION
     Dosage: 40 MG, UID/QD
     Route: 048
     Dates: start: 20110901, end: 20110901
  3. NEBIVOLOL HCL [Concomitant]
     Indication: HYPERTENSION
     Dosage: 10 MG, UID/QD
     Route: 048
     Dates: start: 20110901, end: 20110901
  4. ADENOSCAN [Suspect]
     Indication: SCAN MYOCARDIAL PERFUSION
     Dosage: 67.2 MG, TOTAL DOSE
     Route: 042
     Dates: start: 20110901, end: 20110901
  5. EZETIMIBE [Concomitant]
     Indication: DYSLIPIDAEMIA
     Dosage: 10 MG, UID/QD
     Route: 048
     Dates: start: 20100517
  6. GEL FOR BLADDER CONTROL [Concomitant]
     Indication: POLLAKIURIA
     Dosage: UNK
     Route: 061
     Dates: start: 20101001
  7. METOPROLOL [Concomitant]
     Indication: HYPERTENSION
     Dosage: 50 MG, BID
     Route: 048
     Dates: start: 20050101
  8. CLONIDINE [Concomitant]
     Indication: HYPERTENSION
     Dosage: 0.3 MG, WEEKLY
     Route: 062
     Dates: start: 20050101
  9. INSULIN GLARGINE [Concomitant]
     Indication: DIABETES MELLITUS
     Dosage: UNK
     Route: 058
     Dates: start: 20050201
  10. INSULIN LISPRO [Concomitant]
     Indication: DIABETES MELLITUS
     Dosage: UNK
     Route: 058
     Dates: start: 20061001
  11. CLOPIDOGREL BISULFATE [Concomitant]
     Indication: CORONARY ARTERY DISEASE
     Dosage: 75 MG, UID/QD
     Route: 048
     Dates: start: 20050201
  12. SUSPECT STUDY DRUG [Suspect]
     Indication: PRODUCT USED FOR UNKNOWN INDICATION
     Dosage: UNK
     Route: 065
  13. AMINOPHYLLINE [Concomitant]
     Indication: DYSPNOEA
     Dosage: 75 MG, UID/QD
     Route: 042
     Dates: start: 20110901, end: 20110901
  14. ASPIRIN [Concomitant]
     Indication: CORONARY ARTERY DISEASE
     Dosage: 325 MG, UID/QD
     Route: 048
     Dates: start: 20050219
  15. NITROGLYCERIN [Concomitant]
     Indication: CHEST DISCOMFORT
     Dosage: 0.4 MG, PRN
     Route: 060
     Dates: start: 20050401
  16. RAMIPRIL [Concomitant]
     Indication: HYPERTENSION
     Dosage: 10 MG, BID
     Route: 048
     Dates: start: 20050101
  17. NITROGLYCERIN [Concomitant]
     Indication: CHEST PAIN
     Dosage: UNK
     Route: 048
     Dates: start: 20110901
  18. HYDROCHLOROTHIAZIDE [Concomitant]
     Indication: HYPERTENSION
     Dosage: 12.5 MG, PRN
     Route: 048
     Dates: start: 20080411

REACTIONS (5)
  - DIABETES MELLITUS INADEQUATE CONTROL [None]
  - SUPRAVENTRICULAR TACHYCARDIA [None]
  - ANAEMIA POSTOPERATIVE [None]
  - CORONARY ARTERY DISEASE [None]
  - HYPERTENSION [None]
